FAERS Safety Report 9654452 (Version 1)
Quarter: 2013Q4

REPORT INFORMATION
  Report Type: Spontaneous
  Country: US (occurrence: US)
  Receive Date: 20131029
  Receipt Date: 20131029
  Transmission Date: 20140711
  Serious: Yes (Other)
  Sender: FDA-Public Use
  Company Number: CHPA2013US016265

PATIENT
  Age: 66 Year
  Sex: Male

DRUGS (4)
  1. 4 WAY FAST ACTING NASAL SPRAY [Suspect]
     Indication: SEASONAL ALLERGY
     Dosage: UNK, PRN
     Route: 045
  2. 4 WAY FAST ACTING NASAL SPRAY [Suspect]
     Indication: NASOPHARYNGITIS
  3. 4 WAY FAST ACTING NASAL SPRAY [Suspect]
     Indication: SINUS DISORDER
  4. AMOXICILLIN [Concomitant]
     Indication: NASOPHARYNGITIS
     Dosage: UNK, UNK

REACTIONS (2)
  - Nasopharyngitis [Not Recovered/Not Resolved]
  - Expired drug administered [Unknown]
